FAERS Safety Report 14688161 (Version 3)
Quarter: 2018Q2

REPORT INFORMATION
  Report Type: Spontaneous
  Country: US (occurrence: US)
  Receive Date: 20180328
  Receipt Date: 20180405
  Transmission Date: 20180711
  Serious: No
  Sender: FDA-Public Use
  Company Number: US-PFIZER INC-2018125937

PATIENT
  Age: 79 Year
  Sex: Female
  Weight: 62.59 kg

DRUGS (2)
  1. LYRICA [Suspect]
     Active Substance: PREGABALIN
     Indication: PAIN IN EXTREMITY
     Dosage: 50 MG, 2X/DAY; ONCE IN THE MORNING AND ONCE IN THE EVENING
     Route: 048
     Dates: start: 20180305, end: 20180315
  2. LYRICA [Suspect]
     Active Substance: PREGABALIN
     Dosage: 50 MG, DAILY

REACTIONS (2)
  - Swollen tongue [Recovering/Resolving]
  - Drug hypersensitivity [Unknown]

NARRATIVE: CASE EVENT DATE: 20180305
